FAERS Safety Report 9315396 (Version 1)
Quarter: 2013Q2

REPORT INFORMATION
  Report Type: Spontaneous
  Country: US (occurrence: US)
  Receive Date: 20130529
  Receipt Date: 20130529
  Transmission Date: 20140414
  Serious: Yes (Other)
  Sender: FDA-Public Use
  Company Number: US-ASTRAZENECA-2013SE14221

PATIENT
  Sex: Female
  Weight: 8 kg

DRUGS (6)
  1. SYNAGIS [Suspect]
     Route: 030
     Dates: start: 20121130
  2. SYNAGIS [Suspect]
     Route: 030
     Dates: start: 20121227
  3. SYNAGIS [Suspect]
     Route: 030
     Dates: start: 20130123
  4. SYNAGIS [Suspect]
     Route: 030
     Dates: start: 20130225
  5. ANESTHESIA [Suspect]
     Route: 065
  6. POLY-VI-SOL DRO [Concomitant]

REACTIONS (3)
  - Hernia [Unknown]
  - Oesophageal spasm [Unknown]
  - Application site hypersensitivity [Unknown]
